FAERS Safety Report 10244358 (Version 1)
Quarter: 2014Q2

REPORT INFORMATION
  Report Type: Spontaneous
  Country: IT (occurrence: None)
  Receive Date: 20140616
  Receipt Date: 20140616
  Transmission Date: 20141212
  Serious: Yes (Other)
  Sender: FDA-Public Use
  Company Number: AUR-APL-2014-06299

PATIENT
  Age: 34 Year
  Sex: Male

DRUGS (4)
  1. PAROXETINE [Suspect]
     Indication: DEPRESSION
  2. CARVEDILOL (CARVEDILOL) [Concomitant]
  3. HYDROCHLOROTHIAZIDE (HYDROCHLOROTHIAZIDE) [Concomitant]
  4. TELMISARTAN (TELMISARTAN) [Concomitant]

REACTIONS (5)
  - Rapid eye movements sleep abnormal [None]
  - Drug withdrawal syndrome [None]
  - Somnolence [None]
  - Sleep disorder [None]
  - Poor quality sleep [None]
